FAERS Safety Report 8371190-3 (Version None)
Quarter: 2012Q2

REPORT INFORMATION
  Report Type: 
  Country: None (occurrence: None)
  Receive Date: 20120518
  Receipt Date: 20120515
  Transmission Date: 20120825
  Serious: Yes (Hospitalization, Other)
  Sender: FDA-Public Use
  Company Number: PHHY2012JP007840

PATIENT
  Age: 74 Year
  Sex: Female
  Weight: 45 kg

DRUGS (5)
  1. QVAR 40 [Concomitant]
     Indication: ASTHMA
  2. CEFTRIAXONE SODIUM [Suspect]
     Indication: BRONCHITIS
     Dosage: 1 G, DAILY DOSE
     Route: 042
     Dates: start: 20120112, end: 20120112
  3. EVISTA [Concomitant]
  4. EDIROL [Concomitant]
  5. BROCIN [Concomitant]

REACTIONS (7)
  - ASTHMA [None]
  - RESPIRATORY DISTRESS [None]
  - DYSPNOEA [None]
  - LYMPHOCYTE COUNT DECREASED [None]
  - WHEEZING [None]
  - TREMOR [None]
  - ANAPHYLACTIC SHOCK [None]
